FAERS Safety Report 21594711 (Version 2)
Quarter: 2023Q2

REPORT INFORMATION
  Report Type: Spontaneous
  Country: ES (occurrence: ES)
  Receive Date: 20221115
  Receipt Date: 20230421
  Transmission Date: 20230722
  Serious: Yes (Hospitalization, Other)
  Sender: FDA-Public Use
  Company Number: None

PATIENT
  Age: 65 Year
  Sex: Female

DRUGS (4)
  1. OPDIVO [Suspect]
     Active Substance: NIVOLUMAB
     Indication: Choroid melanoma
     Dosage: C3 28/07/2022??OPDIVO-10MG/ML
     Route: 042
     Dates: start: 202205, end: 20220728
  2. OPDIVO [Suspect]
     Active Substance: NIVOLUMAB
     Route: 042
     Dates: start: 20220504, end: 20220902
  3. YERVOY [Suspect]
     Active Substance: IPILIMUMAB
     Indication: Choroid melanoma
     Dosage: C3  28/07/2022?YERVOY -5 MG/ML
     Route: 042
     Dates: start: 202205, end: 20220728
  4. YERVOY [Suspect]
     Active Substance: IPILIMUMAB
     Route: 042
     Dates: start: 20220504, end: 20220902

REACTIONS (3)
  - Immune-mediated myocarditis [Recovering/Resolving]
  - Immune-mediated enterocolitis [Recovering/Resolving]
  - Immune-mediated hepatitis [Recovering/Resolving]

NARRATIVE: CASE EVENT DATE: 20220920
